FAERS Safety Report 8540372-X (Version None)
Quarter: 2012Q3

REPORT INFORMATION
  Report Type: 
  Country: None (occurrence: None)
  Receive Date: 20120726
  Receipt Date: 20120502
  Transmission Date: 20120928
  Serious: No
  Sender: FDA-Public Use
  Company Number: US-ASTRAZENECA-2010SE53747

PATIENT
  Age: 46 Year
  Sex: Female

DRUGS (5)
  1. SEROQUEL XR [Suspect]
     Indication: BIPOLAR DISORDER
     Route: 048
  2. NEXIUM [Suspect]
     Route: 048
  3. SEROQUEL XR [Suspect]
     Route: 048
  4. SEROQUEL XR [Suspect]
     Indication: BIPOLAR I DISORDER
     Route: 048
  5. SEROQUEL XR [Suspect]
     Route: 048

REACTIONS (5)
  - DYSSTASIA [None]
  - MALAISE [None]
  - DRUG INTOLERANCE [None]
  - GASTROENTERITIS [None]
  - SOMNOLENCE [None]
